FAERS Safety Report 6400472-7 (Version None)
Quarter: 2009Q4

REPORT INFORMATION
  Report Type: 
  Country: None (occurrence: None)
  Receive Date: 20091007
  Receipt Date: 20091007
  Transmission Date: 20100525
  Serious: Yes (Other)
  Sender: FDA-Public Use
  Company Number: None

PATIENT

DRUGS (1)
  1. PROSTAVASIN /00501501/ (PROSTAVASIN) [Suspect]
     Indication: PERIPHERAL ARTERIAL OCCLUSIVE DISEASE

REACTIONS (2)
  - POST PROCEDURAL COMPLICATION [None]
  - VENOUS OCCLUSION [None]
